FAERS Safety Report 9617733 (Version 2)
Quarter: 2013Q4

REPORT INFORMATION
  Report Type: Spontaneous
  Country: US (occurrence: US)
  Receive Date: 20131011
  Receipt Date: 20131024
  Transmission Date: 20140711
  Serious: Yes (Death, Hospitalization)
  Sender: FDA-Public Use
  Company Number: US-B.I. PHARMACEUTICALS,INC./RIDGEFIELD-2013-BI-31999BP

PATIENT
  Sex: Male

DRUGS (7)
  1. PRADAXA [Suspect]
     Indication: ATRIAL FIBRILLATION
     Dosage: 300 MG
  2. GABAPENTIN [Concomitant]
  3. METFORMIN [Concomitant]
  4. GENOVIA [Concomitant]
  5. SIMVASTATIN [Concomitant]
  6. DIGOXIN [Concomitant]
  7. BABY ASPIRIN [Concomitant]

REACTIONS (3)
  - Subdural haematoma [Fatal]
  - Asthenia [Unknown]
  - Fall [Unknown]
